FAERS Safety Report 10716387 (Version 2)
Quarter: 2015Q2

REPORT INFORMATION
  Report Type: Spontaneous
  Country: CZ (occurrence: CZ)
  Receive Date: 20150116
  Receipt Date: 20150521
  Transmission Date: 20150821
  Serious: Yes (Life-Threatening, Hospitalization)
  Sender: FDA-Public Use
  Company Number: CZ-SA-2015SA004698

PATIENT
  Age: 67 Year
  Sex: Male

DRUGS (2)
  1. FRAXIPARINE [Suspect]
     Active Substance: NADROPARIN CALCIUM
     Indication: VENOUS THROMBOSIS
     Route: 058
  2. CLEXANE [Suspect]
     Active Substance: ENOXAPARIN SODIUM
     Indication: THROMBOSIS PROPHYLAXIS
     Route: 058

REACTIONS (9)
  - Pain in extremity [Recovered/Resolved]
  - Lividity [Recovered/Resolved]
  - Paraparesis [Recovered/Resolved]
  - Venous thrombosis [Recovered/Resolved]
  - Atrial thrombosis [Recovered/Resolved]
  - Heparin-induced thrombocytopenia [Recovered/Resolved]
  - Oedema peripheral [Recovered/Resolved]
  - Aortic occlusion [Recovered/Resolved]
  - Iliac artery occlusion [Recovered/Resolved]
